FAERS Safety Report 8366896-6 (Version None)
Quarter: 2012Q2

REPORT INFORMATION
  Report Type: 
  Country: None (occurrence: None)
  Receive Date: 20120517
  Receipt Date: 20120508
  Transmission Date: 20120825
  Serious: Yes (Death)
  Sender: FDA-Public Use
  Company Number: JP-ROCHE-1069526

PATIENT
  Age: 78 Year
  Sex: Female

DRUGS (4)
  1. FAMOTIDINE [Concomitant]
     Indication: PEPTIC ULCER
  2. OMEPRAZOLE [Concomitant]
     Indication: PEPTIC ULCER
  3. EDARAVONE [Concomitant]
     Route: 042
     Dates: start: 20120502
  4. ALTEPLASE [Suspect]
     Indication: PRODUCT USED FOR UNKNOWN INDICATION
     Route: 051

REACTIONS (1)
  - HAEMORRHAGE INTRACRANIAL [None]
